FAERS Safety Report 5005523-2 (Version None)
Quarter: 2006Q2

REPORT INFORMATION
  Report Type: 
  Country: None (occurrence: None)
  Receive Date: 20060518
  Receipt Date: 20050621
  Transmission Date: 20061013
  Serious: Yes (Hospitalization, Disabling)
  Sender: FDA-Public Use
  Company Number: US-ROCHE-408652

PATIENT
  Age: 15 Year
  Sex: Male
  Weight: 65.8 kg

DRUGS (3)
  1. ACCUTANE [Suspect]
     Indication: ACNE
     Route: 048
     Dates: start: 19970501, end: 19971022
  2. ACCUTANE [Suspect]
     Route: 048
     Dates: start: 19981007, end: 19990306
  3. IBUPROFEN [Concomitant]
     Dates: start: 19880615

REACTIONS (51)
  - ANHEDONIA [None]
  - ANXIETY [None]
  - ARTHRALGIA [None]
  - BLOOD BILIRUBIN INCREASED [None]
  - BLOOD TRIGLYCERIDES INCREASED [None]
  - CARDIAC DISORDER [None]
  - COLITIS [None]
  - COLITIS ULCERATIVE [None]
  - CONVERSION DISORDER [None]
  - CONVULSION [None]
  - COUGH [None]
  - CROHN'S DISEASE [None]
  - CYST [None]
  - CYSTIC LYMPHANGIOMA [None]
  - DYSPEPSIA [None]
  - FRACTURE [None]
  - GALLBLADDER DISORDER [None]
  - GASTRIC DISORDER [None]
  - GASTRIC HAEMORRHAGE [None]
  - GASTRIC PERFORATION [None]
  - GASTRITIS [None]
  - GASTROINTESTINAL DISORDER [None]
  - GASTROOESOPHAGEAL REFLUX DISEASE [None]
  - HAEMATEMESIS [None]
  - HEADACHE [None]
  - HYPERHIDROSIS [None]
  - INCREASED TENDENCY TO BRUISE [None]
  - INFECTION PARASITIC [None]
  - INFLAMMATORY BOWEL DISEASE [None]
  - INTESTINAL HAEMORRHAGE [None]
  - INTESTINAL OBSTRUCTION [None]
  - IRRITABLE BOWEL SYNDROME [None]
  - MENINGITIS [None]
  - MIGRAINE [None]
  - MUSCLE SPASMS [None]
  - MUSCULOSKELETAL DISORDER [None]
  - MYALGIA [None]
  - NAUSEA [None]
  - NECK MASS [None]
  - NEURALGIA [None]
  - NIGHT BLINDNESS [None]
  - OTITIS MEDIA ACUTE [None]
  - PAIN [None]
  - PAIN IN EXTREMITY [None]
  - PALPITATIONS [None]
  - PHOTOPHOBIA [None]
  - POLYTRAUMATISM [None]
  - RECTAL HAEMORRHAGE [None]
  - VISION BLURRED [None]
  - VOMITING [None]
  - XEROSIS [None]
